FAERS Safety Report 15480499 (Version 1)
Quarter: 2018Q4

REPORT INFORMATION
  Report Type: Spontaneous
  Country: FR (occurrence: FR)
  Receive Date: 20181010
  Receipt Date: 20181010
  Transmission Date: 20190205
  Serious: Yes (Death, Other)
  Sender: FDA-Public Use
  Company Number: FR-AUROBINDO-AUR-APL-2018-048782

PATIENT
  Sex: Female

DRUGS (8)
  1. BROMAZEPAM TABLET [Suspect]
     Active Substance: BROMAZEPAM
     Indication: PRODUCT USED FOR UNKNOWN INDICATION
     Dosage: UNK UNK, ONCE A DAY
     Route: 065
  2. BROMAZEPAM TABLET [Suspect]
     Active Substance: BROMAZEPAM
     Dosage: UNK
     Route: 065
     Dates: start: 20110630, end: 20140124
  3. CLOPIXOL ACTION PROLONGEE 200 MG/1 ML, SOLUTION INJECTABLE IM [Suspect]
     Active Substance: ZUCLOPENTHIXOL ACETATE
     Dosage: UNK
     Route: 065
     Dates: start: 20100101
  4. TROPATEPINE HYDROCHLORIDE [Suspect]
     Active Substance: TROPATEPINE HYDROCHLORIDE
     Indication: PRODUCT USED FOR UNKNOWN INDICATION
     Dosage: UNK
     Route: 065
  5. ZOPICLONE [Suspect]
     Active Substance: ZOPICLONE
     Indication: PRODUCT USED FOR UNKNOWN INDICATION
     Dosage: UNK
     Route: 065
  6. CLOPIXOL ACTION PROLONGEE 200 MG/1 ML, SOLUTION INJECTABLE IM [Suspect]
     Active Substance: ZUCLOPENTHIXOL ACETATE
     Indication: PRODUCT USED FOR UNKNOWN INDICATION
     Dosage: 2 DOSAGE FORM, 14 DAY
     Route: 065
     Dates: start: 20130613
  7. ANETHOLE TRITHIONE [Suspect]
     Active Substance: ANETHOLTRITHION
     Indication: PRODUCT USED FOR UNKNOWN INDICATION
     Dosage: UNK
     Route: 065
  8. PARACETAMOL [Suspect]
     Active Substance: ACETAMINOPHEN
     Indication: PRODUCT USED FOR UNKNOWN INDICATION
     Dosage: UNK
     Route: 065
     Dates: start: 20110630, end: 20140124

REACTIONS (26)
  - Respiratory failure [Fatal]
  - Hypoaesthesia [Unknown]
  - Movement disorder [Unknown]
  - Apathy [Unknown]
  - Sensory loss [Unknown]
  - Speech disorder [Unknown]
  - Angina pectoris [Unknown]
  - Slow response to stimuli [Unknown]
  - Dysphagia [Unknown]
  - Sensory disturbance [Unknown]
  - Fall [Unknown]
  - Fear [Unknown]
  - Crying [Unknown]
  - Hypersomnia [Unknown]
  - Respiratory disorder [Unknown]
  - Mastication disorder [Unknown]
  - Feeling abnormal [Unknown]
  - Dysarthria [Unknown]
  - Loss of personal independence in daily activities [Unknown]
  - Gait disturbance [Unknown]
  - Dental caries [Unknown]
  - Pregnancy [Recovered/Resolved]
  - Confusional state [Unknown]
  - Bronchitis chronic [Unknown]
  - Dry mouth [Unknown]
  - Cough [Unknown]

NARRATIVE: CASE EVENT DATE: 2011
